FAERS Safety Report 10515584 (Version 1)
Quarter: 2014Q4

REPORT INFORMATION
  Report Type: Spontaneous
  Country: US (occurrence: US)
  Receive Date: 20141014
  Receipt Date: 20141014
  Transmission Date: 20150528
  Serious: No
  Sender: FDA-Public Use
  Company Number: US-MYLANLABS-2014M1004561

PATIENT
  Sex: Female

DRUGS (1)
  1. CHATEAL [Suspect]
     Active Substance: ETHINYL ESTRADIOL\LEVONORGESTREL
     Dosage: UNK

REACTIONS (3)
  - Drug dose omission [Recovered/Resolved]
  - Menstruation irregular [Not Recovered/Not Resolved]
  - Breast tenderness [Not Recovered/Not Resolved]
